FAERS Safety Report 24029087 (Version 3)
Quarter: 2024Q3

REPORT INFORMATION
  Report Type: Spontaneous
  Country: US (occurrence: US)
  Receive Date: 20240628
  Receipt Date: 20240730
  Transmission Date: 20241017
  Serious: Yes (Hospitalization)
  Sender: ROCHE
  Company Number: US-ROCHE-3567276

PATIENT
  Age: 67 Year

DRUGS (1)
  1. ACTEMRA [Suspect]
     Active Substance: TOCILIZUMAB
     Indication: Product used for unknown indication
     Dosage: 1-200 MG VIAL AND 2-80 MG VIALS
     Route: 042
     Dates: start: 20230928

REACTIONS (2)
  - Diverticular perforation [Unknown]
  - Product contamination [Unknown]

NARRATIVE: CASE EVENT DATE: 20240502
